FAERS Safety Report 15272455 (Version 1)
Quarter: 2018Q3

REPORT INFORMATION
  Report Type: Spontaneous
  Country: US (occurrence: US)
  Receive Date: 20180727
  Receipt Date: 20180727
  Transmission Date: 20181010
  Serious: Yes (Other)
  Sender: FDA-Public Use
  Company Number: None

PATIENT
  Age: 17 Year
  Sex: Female
  Weight: 80.55 kg

DRUGS (1)
  1. PEPTO?BISMOL [Suspect]
     Active Substance: BISMUTH SUBSALICYLATE
     Indication: OESOPHAGITIS

REACTIONS (4)
  - Burning sensation [None]
  - Condition aggravated [None]
  - Sensation of foreign body [None]
  - Sleep disorder [None]

NARRATIVE: CASE EVENT DATE: 20180727
